FAERS Safety Report 12192903 (Version 1)
Quarter: 2016Q1

REPORT INFORMATION
  Report Type: Spontaneous
  Country: US (occurrence: US)
  Receive Date: 20160318
  Receipt Date: 20160318
  Transmission Date: 20160526
  Serious: No
  Sender: FDA-Public Use
  Company Number: US-PFIZER INC-2016118423

PATIENT
  Age: 80 Year
  Sex: Male
  Weight: 78 kg

DRUGS (11)
  1. ZITHROMAX [Suspect]
     Active Substance: AZITHROMYCIN DIHYDRATE
     Indication: COUGH
     Dosage: 250 MG
     Dates: start: 20160212
  2. LASIX [Concomitant]
     Active Substance: FUROSEMIDE
     Dosage: 20, 1 TABLET DAILY
  3. ZITHROMAX [Suspect]
     Active Substance: AZITHROMYCIN DIHYDRATE
     Dosage: 250 MG
     Dates: start: 20160219, end: 20160220
  4. MULTIVITAMINS [Concomitant]
     Active Substance: VITAMINS
  5. XARELTO [Concomitant]
     Active Substance: RIVAROXABAN
     Dosage: 20 MG, DAILY
  6. TAMSULOSIN HYDROCHLORIDE. [Concomitant]
     Active Substance: TAMSULOSIN HYDROCHLORIDE
     Dosage: 1 DF, 2X/DAY
  7. LOSARTAN POTASSIUM. [Concomitant]
     Active Substance: LOSARTAN POTASSIUM
     Dosage: 20 MG, DAILY
  8. ASPIRIN. [Concomitant]
     Active Substance: ASPIRIN
  9. RANITIDINE [Concomitant]
     Active Substance: RANITIDINE\RANITIDINE HYDROCHLORIDE
     Dosage: 150, 1 TABLET DAILY
  10. TRAZODONE [Concomitant]
     Active Substance: TRAZODONE HYDROCHLORIDE
     Dosage: 50,1 AT BEDTIME
  11. IRON [Concomitant]
     Active Substance: IRON
     Dosage: UNK UNK, 2X/DAY

REACTIONS (4)
  - Throat lesion [Unknown]
  - Diarrhoea [Not Recovered/Not Resolved]
  - Foreign body [Unknown]
  - Drug effect incomplete [Unknown]
